FAERS Safety Report 4377236-1 (Version None)
Quarter: 2004Q2

REPORT INFORMATION
  Report Type: 
  Country: None (occurrence: None)
  Receive Date: 20040609
  Receipt Date: 20040326
  Transmission Date: 20050107
  Serious: No
  Sender: FDA-Public Use
  Company Number: 2004206825US

PATIENT
  Age: 67 Year
  Sex: Female

DRUGS (9)
  1. BEXTRA [Suspect]
     Indication: ARTHRITIS
     Dosage: 10 MG, UNK, UNK
     Route: 065
     Dates: start: 20040101, end: 20040330
  2. LEVOXYL [Concomitant]
  3. LIPITOR [Concomitant]
  4. DARVOCET-N 100 [Concomitant]
  5. ATIVAN [Concomitant]
  6. AMBIEN [Concomitant]
  7. CALCIUM [Concomitant]
  8. ONE-A-DAY (THIAMINE MONONITRATE, RETINOL, ERGOCALCIFEROL) [Concomitant]
  9. GLUCOSAMINE [Concomitant]

REACTIONS (5)
  - BACK PAIN [None]
  - HEADACHE [None]
  - MUSCLE CRAMP [None]
  - MUSCULOSKELETAL STIFFNESS [None]
  - MYALGIA [None]
